FAERS Safety Report 5757335-X (Version None)
Quarter: 2008Q2

REPORT INFORMATION
  Report Type: 
  Country: None (occurrence: None)
  Receive Date: 20080603
  Receipt Date: 20080523
  Transmission Date: 20081010
  Serious: Yes (Other)
  Sender: FDA-Public Use
  Company Number: FR-TYCO HEALTHCARE/MALLINCKRODT-T200800942

PATIENT

DRUGS (1)
  1. OPTIJECT [Suspect]
     Dosage: UNK, SINGLE

REACTIONS (2)
  - CIRCULATORY COLLAPSE [None]
  - URTICARIA [None]
